FAERS Safety Report 19396616 (Version 1)
Quarter: 2021Q2

REPORT INFORMATION
  Report Type: Report from Study
  Country: FR (occurrence: FR)
  Receive Date: 20210609
  Receipt Date: 20210609
  Transmission Date: 20210717
  Serious: Yes (Hospitalization, Other)
  Sender: FDA-Public Use
  Company Number: FR-TAKEDA-FR202031708

PATIENT
  Age: 49 Year
  Sex: Male

DRUGS (8)
  1. UVEDOSE [Concomitant]
     Active Substance: CHOLECALCIFEROL
     Indication: SUPPLEMENTATION THERAPY
     Dosage: 100000 INTERNATIONAL UNIT, 2/MONTH
     Route: 048
     Dates: start: 20190319
  2. POTASSIUM [Concomitant]
     Active Substance: POTASSIUM
     Indication: HYPOKALAEMIA
     Dosage: 1 DOSAGE FORM, 6 TIMES A DAY
     Route: 048
     Dates: start: 20190319, end: 20190403
  3. TEDUGLUTIDE [Suspect]
     Active Substance: TEDUGLUTIDE
     Indication: SHORT-BOWEL SYNDROME
     Dosage: 3.6 MILLIGRAM (0.05 MILLIGRAM/KILOGRAM DAILY DOSE), QD
     Route: 065
     Dates: start: 20171206
  4. IMODIUM [Concomitant]
     Active Substance: LOPERAMIDE HYDROCHLORIDE
     Indication: SHORT-BOWEL SYNDROME
     Dosage: 2 MILLIGRAM, TID
     Route: 048
     Dates: start: 20190319
  5. TEDUGLUTIDE [Suspect]
     Active Substance: TEDUGLUTIDE
     Indication: SHORT-BOWEL SYNDROME
     Dosage: 3.6 MILLIGRAM (0.05 MILLIGRAM/KILOGRAM DAILY DOSE), QD
     Route: 065
     Dates: start: 20171206
  6. TEDUGLUTIDE [Suspect]
     Active Substance: TEDUGLUTIDE
     Indication: SHORT-BOWEL SYNDROME
     Dosage: 3.6 MILLIGRAM (0.05 MILLIGRAM/KILOGRAM DAILY DOSE), QD
     Route: 065
     Dates: start: 20171206
  7. TEDUGLUTIDE [Suspect]
     Active Substance: TEDUGLUTIDE
     Indication: SHORT-BOWEL SYNDROME
     Dosage: 3.6 MILLIGRAM (0.05 MILLIGRAM/KILOGRAM DAILY DOSE), QD
     Route: 065
     Dates: start: 20171206
  8. VITAMINE B12 [Concomitant]
     Active Substance: CYANOCOBALAMIN
     Indication: VITAMIN SUPPLEMENTATION
     Dosage: 2 DOSAGE FORM, 1/WEEK
     Route: 048
     Dates: start: 20190319

REACTIONS (6)
  - Diversion colitis [Not Recovered/Not Resolved]
  - Fistula [Recovered/Resolved]
  - Vascular device infection [Recovered/Resolved]
  - Urinary tract infection [Recovered/Resolved]
  - Hyperthermia [Recovered/Resolved]
  - Hypokalaemia [Recovered/Resolved]

NARRATIVE: CASE EVENT DATE: 20191004
